FAERS Safety Report 4487854-8 (Version None)
Quarter: 2004Q4

REPORT INFORMATION
  Report Type: 
  Country: None (occurrence: None)
  Receive Date: 20041027
  Receipt Date: 20041027
  Transmission Date: 20050328
  Serious: No
  Sender: FDA-Public Use
  Company Number: None

PATIENT
  Age: 54 Year
  Sex: Female
  Weight: 65.7716 kg

DRUGS (3)
  1. DICYCLOMINE  20 MG (AVENTIS) [Suspect]
     Indication: IRRITABLE BOWEL SYNDROME
     Dosage: ONE PO TID
     Route: 048
     Dates: start: 20040712, end: 20040715
  2. DICYCLOMINE  20 MG (AVENTIS) [Suspect]
     Indication: IRRITABLE BOWEL SYNDROME
     Dosage: ONE PO TID
     Route: 048
     Dates: start: 20040810, end: 20040814
  3. DICYCLOMINE  20 MG (AVENTIS) [Suspect]
     Indication: IRRITABLE BOWEL SYNDROME
     Dosage: ONE PO TID
     Route: 048
     Dates: start: 20040820, end: 20040823

REACTIONS (2)
  - HEADACHE [None]
  - PHARMACEUTICAL PRODUCT COMPLAINT [None]
